FAERS Safety Report 6894051-5 (Version None)
Quarter: 2010Q3

REPORT INFORMATION
  Report Type: 
  Country: None (occurrence: None)
  Receive Date: 20100802
  Receipt Date: 20100720
  Transmission Date: 20110219
  Serious: No
  Sender: FDA-Public Use
  Company Number: US-JNJFOC-20100706970

PATIENT
  Sex: Female

DRUGS (5)
  1. FENTANYL CITRATE [Suspect]
     Indication: PAIN
     Route: 062
  2. DURAGESIC-100 [Suspect]
     Indication: PAIN
     Route: 062
  3. FENTANYL CITRATE [Suspect]
     Indication: PAIN
     Dosage: NDC NUMBER: 0781-7114-55
     Route: 062
  4. TETRACYCLINE [Suspect]
     Indication: BIPOLAR DISORDER
     Route: 048
  5. UNKNOWN MEDICATION [Suspect]
     Indication: BIPOLAR DISORDER
     Route: 065

REACTIONS (4)
  - ABNORMAL LOSS OF WEIGHT [None]
  - WEIGHT INCREASED [None]
  - WITHDRAWAL SYNDROME [None]
  - WRONG TECHNIQUE IN DRUG USAGE PROCESS [None]
